FAERS Safety Report 24650021 (Version 1)
Quarter: 2024Q4

REPORT INFORMATION
  Report Type: Spontaneous
  Country: DE (occurrence: DE)
  Receive Date: 20241122
  Receipt Date: 20241122
  Transmission Date: 20250115
  Serious: Yes (Other)
  Sender: AUROBINDO
  Company Number: DE-MLMSERVICE-20241101-PI247754-00123-1

PATIENT
  Age: 79 Year
  Sex: Male

DRUGS (18)
  1. DOCETAXEL [Suspect]
     Active Substance: DOCETAXEL
     Indication: Prostate cancer metastatic
     Dosage: FIVE CYCLES
     Route: 065
     Dates: start: 202002, end: 2020
  2. DOCETAXEL [Suspect]
     Active Substance: DOCETAXEL
     Indication: Metastases to lymph nodes
     Dosage: (SIX CYCLES FROM FEB. TO MAY 2020, LAST CYCLE WITH REDUCED DOSE DUE TO PANCYTOPENIA)
     Route: 065
     Dates: start: 202002, end: 2020
  3. DOCETAXEL [Suspect]
     Active Substance: DOCETAXEL
     Indication: Metastases to bone
     Dosage: (SIX CYCLES FROM FEB. TO MAY 2020, LAST CYCLE WITH REDUCED DOSE DUE TO PANCYTOPENIA)
     Route: 065
     Dates: start: 2020, end: 202005
  4. ACTINIUM AC-225 DOTATATE [Suspect]
     Active Substance: ACTINIUM AC-225 DOTATATE
     Indication: Prostate cancer
     Dosage: UNK, TANDEM-PRLT (6.2 GBQ OF 177LU PLUS 2.1 MBQ OF 225AC)
     Route: 065
     Dates: start: 201911, end: 201911
  5. LUTETIUM CHLORIDE LU-177 [Suspect]
     Active Substance: LUTETIUM CHLORIDE LU-177
     Indication: Radioisotope therapy
     Dosage: CYCLE #1 CUMULATIVE ACTIVITY 14.8 GBQ
     Route: 065
     Dates: start: 201905, end: 201907
  6. LUTETIUM CHLORIDE LU-177 [Suspect]
     Active Substance: LUTETIUM CHLORIDE LU-177
     Dosage: CYCLE #2 CUMULATIVE ACTIVITY 14.8 GBQ
     Route: 065
     Dates: start: 201905, end: 201907
  7. LUTETIUM CHLORIDE LU-177 [Suspect]
     Active Substance: LUTETIUM CHLORIDE LU-177
     Dosage: CYCLE #3 CUMULATIVE ACTIVITY 14.2 GBQ
     Route: 065
     Dates: start: 201908, end: 201909
  8. LUTETIUM CHLORIDE LU-177 [Suspect]
     Active Substance: LUTETIUM CHLORIDE LU-177
     Dosage: CYCLE #4, CUMULATIVE ACTIVITY OF 14.2GBQ
     Route: 065
     Dates: start: 201908, end: 201909
  9. LUTETIUM CHLORIDE LU-177 [Suspect]
     Active Substance: LUTETIUM CHLORIDE LU-177
     Dosage: 6.2 GIGABECQUEREL (CYCLE #5 TANDEM-PRLT (6.2 BGQ OF 177LU PLUS 2.1 MBQ OF 225AC))
     Route: 065
     Dates: start: 201911, end: 201911
  10. LUTETIUM CHLORIDE LU-177 [Suspect]
     Active Substance: LUTETIUM CHLORIDE LU-177
     Dosage: 7.4 GIGABECQUEREL (CYCLE #6 7.4 GBQ OF 177LU-PSMA-I+T IN COMBINATION WITH B-OT)
     Route: 065
     Dates: start: 202006, end: 202006
  11. LUTETIUM CHLORIDE LU-177 [Suspect]
     Active Substance: LUTETIUM CHLORIDE LU-177
     Dosage: 8.6 GIGABECQUEREL (CYCLE #7 8.6GBQ OF 177LU-PSMA-I+T IN COMBINATION WITH B-OT)
     Route: 065
     Dates: start: 202007, end: 202007
  12. LUTETIUM CHLORIDE LU-177 [Suspect]
     Active Substance: LUTETIUM CHLORIDE LU-177
     Dosage: 8.3 GIGABECQUEREL (CYCLE #8 8.3 GBQ OOF 177LU-PSMA-I+T IN COMBINATION WITH B-OT)
     Route: 065
     Dates: start: 202009, end: 202009
  13. LUTETIUM CHLORIDE LU-177 [Suspect]
     Active Substance: LUTETIUM CHLORIDE LU-177
     Dosage: 7.5 GIGABECQUEREL (CYCLE #9 7.5 GBQ OF 177LU-PSMA-I+T IN COMBINATION WITH B-OT)
     Route: 065
     Dates: start: 202101, end: 202101
  14. ELIGARD [Concomitant]
     Active Substance: LEUPROLIDE ACETATE
     Indication: Prostate cancer metastatic
     Dosage: UNK
     Route: 065
     Dates: start: 201510
  15. ELIGARD [Concomitant]
     Active Substance: LEUPROLIDE ACETATE
     Indication: Metastases to lymph nodes
  16. ELIGARD [Concomitant]
     Active Substance: LEUPROLIDE ACETATE
     Indication: Prostate cancer recurrent
  17. XTANDI [Concomitant]
     Active Substance: ENZALUTAMIDE
     Indication: Prostate cancer metastatic
     Dosage: UNK
     Route: 065
     Dates: start: 201805, end: 2020
  18. XTANDI [Concomitant]
     Active Substance: ENZALUTAMIDE
     Indication: Metastases to lymph nodes

REACTIONS (15)
  - Pancytopenia [Recovering/Resolving]
  - Polyneuropathy [Unknown]
  - Alopecia [Unknown]
  - Bundle branch block right [Unknown]
  - Left ventricular dysfunction [Unknown]
  - Thrombocytopenia [Unknown]
  - Fatigue [Unknown]
  - Asthenia [Unknown]
  - Decreased appetite [Unknown]
  - Stress urinary incontinence [Unknown]
  - Dyspnoea exertional [Unknown]
  - Blood lactate dehydrogenase increased [Recovering/Resolving]
  - Hypertension [Unknown]
  - Renal cyst [Unknown]
  - Weight decreased [Unknown]

NARRATIVE: CASE EVENT DATE: 20200101
